FAERS Safety Report 5275119-6 (Version None)
Quarter: 2007Q1

REPORT INFORMATION
  Report Type: 
  Country: None (occurrence: None)
  Receive Date: 20070326
  Receipt Date: 20070312
  Transmission Date: 20070707
  Serious: Yes (Other)
  Sender: FDA-Public Use
  Company Number: PHMT2007CA00839

PATIENT

DRUGS (1)
  1. ZOMETA [Suspect]
     Dosage: 4 MG INTRAVENOUS
     Route: 042

REACTIONS (2)
  - PAIN IN JAW [None]
  - TOOTHACHE [None]
